FAERS Safety Report 8304450-2 (Version None)
Quarter: 2012Q2

REPORT INFORMATION
  Report Type: 
  Country: None (occurrence: None)
  Receive Date: 20120423
  Receipt Date: 20120417
  Transmission Date: 20120825
  Serious: Yes (Other)
  Sender: FDA-Public Use
  Company Number: US-PFIZER INC-2012095403

PATIENT
  Sex: Female
  Weight: 69.4 kg

DRUGS (4)
  1. LYRICA [Suspect]
     Indication: NEURALGIA
     Dosage: 50 MG, 3X/DAY
     Route: 048
  2. LYRICA [Suspect]
     Indication: SCLERODERMA
  3. ADCIRCA [Concomitant]
     Indication: SCLERODERMA
     Dosage: UNK
  4. ADCIRCA [Concomitant]
     Indication: PULMONARY HYPERTENSION

REACTIONS (3)
  - HERPES ZOSTER [None]
  - MUSCULOSKELETAL DISCOMFORT [None]
  - NEURALGIA [None]
